FAERS Safety Report 5476323-4 (Version None)
Quarter: 2007Q4

REPORT INFORMATION
  Report Type: 
  Country: None (occurrence: None)
  Receive Date: 20071003
  Receipt Date: 20070921
  Transmission Date: 20080405
  Serious: Yes (Other)
  Sender: FDA-Public Use
  Company Number: US-PFIZER INC-2007053615

PATIENT
  Sex: Female
  Weight: 54.4 kg

DRUGS (6)
  1. CHANTIX [Suspect]
     Indication: EX-SMOKER
     Dates: start: 20070517, end: 20070701
  2. XANAX [Concomitant]
  3. NEXIUM [Concomitant]
  4. ASPIRIN [Concomitant]
  5. CORTISONE ACETATE TAB [Concomitant]
  6. MELATONIN [Concomitant]

REACTIONS (4)
  - CATARACT [None]
  - LENTICULAR OPACITIES [None]
  - LENTICULAR PIGMENTATION [None]
  - VISION BLURRED [None]
